FAERS Safety Report 6349051-0 (Version None)
Quarter: 2009Q3

REPORT INFORMATION
  Report Type: 
  Country: None (occurrence: None)
  Receive Date: 20090911
  Receipt Date: 20090901
  Transmission Date: 20100115
  Serious: Yes (Other)
  Sender: FDA-Public Use
  Company Number: CA-ABBOTT-07P-028-0425805-00

PATIENT
  Sex: Male
  Weight: 74 kg

DRUGS (13)
  1. HUMIRA [Suspect]
     Indication: PSORIASIS
     Route: 058
     Dates: start: 20040727, end: 20071113
  2. MULTI-VITAMINS [Concomitant]
     Indication: NUTRITIONAL SUPPORT
     Route: 048
     Dates: start: 20030101
  3. ATORVASTATIN [Concomitant]
     Indication: HYPERTRIGLYCERIDAEMIA
     Dates: start: 20040315
  4. RAMIPRIL [Concomitant]
     Indication: HYPERTENSION
     Dates: start: 20060808, end: 20060814
  5. RAMIPRIL [Concomitant]
     Dates: start: 20060815
  6. TEAR GEL 0.8% [Concomitant]
     Indication: RHINITIS ALLERGIC
     Dates: start: 20070129
  7. ASAPHEN [Concomitant]
     Indication: CARDIOVASCULAR EVENT PROPHYLAXIS
     Dates: start: 20070117
  8. HYDROCORTISONE [Concomitant]
     Indication: PSORIASIS
     Dosage: 1%
     Dates: start: 20061115, end: 20061202
  9. METFORMIN HCL [Concomitant]
     Indication: DIABETES MELLITUS
     Dates: start: 20070308
  10. ACETAMINOPHEN [Concomitant]
     Indication: NASOPHARYNGITIS
     Dates: start: 20070702, end: 20070711
  11. FLOVENT [Concomitant]
     Indication: ASTHMA
     Dates: start: 20070820, end: 20070823
  12. SALBUTAMOL [Concomitant]
     Indication: ASTHMA
     Dates: start: 20070820, end: 20070823
  13. PATANOL [Concomitant]
     Indication: RHINITIS ALLERGIC
     Dosage: 0.1%
     Dates: start: 20070129

REACTIONS (1)
  - RECTAL CANCER [None]
